FAERS Safety Report 5857261-1 (Version None)
Quarter: 2008Q3

REPORT INFORMATION
  Report Type: 
  Country: None (occurrence: None)
  Receive Date: 20080822
  Receipt Date: 20080811
  Transmission Date: 20090109
  Serious: Yes (Other)
  Sender: FDA-Public Use
  Company Number: 233383J08USA

PATIENT
  Age: 52 Year
  Sex: Female

DRUGS (2)
  1. REBIF [Suspect]
     Indication: MULTIPLE SCLEROSIS
     Dosage: NOT REPORTED, NOT REPORTED, NOT REPORTED
     Dates: start: 20070807, end: 20080325
  2. BACLOFEN [Concomitant]

REACTIONS (3)
  - INCISION SITE OEDEMA [None]
  - MALIGNANT MELANOMA [None]
  - OEDEMA PERIPHERAL [None]
